FAERS Safety Report 23936342 (Version 1)
Quarter: 2024Q2

REPORT INFORMATION
  Report Type: Spontaneous
  Country: US (occurrence: US)
  Receive Date: 20240604
  Receipt Date: 20240604
  Transmission Date: 20240716
  Serious: No
  Sender: FDA-Public Use
  Company Number: US-Mission Pharmacal Company-2157730

PATIENT
  Age: 49 Year
  Sex: Female

DRUGS (35)
  1. THIOLA [Suspect]
     Active Substance: TIOPRONIN
     Indication: Cystinuria
     Route: 048
     Dates: start: 20160428
  2. ABILIFY MYCITE [Concomitant]
     Active Substance: ARIPIPRAZOLE
  3. Glucerna 1.0 Cal [Concomitant]
  4. MIRTAZAPINE [Concomitant]
     Active Substance: MIRTAZAPINE
  5. ACETAMINOPHEN [Concomitant]
     Active Substance: ACETAMINOPHEN
  6. ALBUTEROL SULFATE HFA [Concomitant]
  7. BUDESONIDE [Concomitant]
     Active Substance: BUDESONIDE
  8. HYDROCORTISONE [Concomitant]
     Active Substance: HYDROCORTISONE
  9. MILK OF MAGNESIA [Concomitant]
     Active Substance: MAGNESIUM HYDROXIDE
  10. NYSTATIN [Concomitant]
     Active Substance: NYSTATIN
  11. ZINC OXIDE [Concomitant]
     Active Substance: ZINC OXIDE
  12. TRIPLE ANTIBIOTIC [Concomitant]
     Active Substance: BACITRACIN ZINC\LIDOCAINE\NEOMYCIN SULFATE\POLYMYXIN B SULFATE\PRAMOXINE HYDROCHLORIDE
  13. MIRALAX [Concomitant]
     Active Substance: POLYETHYLENE GLYCOL 3350
  14. Ipratropium-?Albuterol [Concomitant]
  15. IBUPROFEN [Concomitant]
     Active Substance: IBUPROFEN
  16. Robitussin DM Max?Day/Night [Concomitant]
  17. DIPHENHYDRAMINE HCL [Concomitant]
  18. BISMATROL [Concomitant]
     Active Substance: BISMUTH SUBSALICYLATE
  19. BISACODYL [Concomitant]
     Active Substance: BISACODYL
  20. Benadryl Itch?Stopping [Concomitant]
  21. ANTI-DIARRHEAL LOPERAMIDE HCL [Concomitant]
     Active Substance: LOPERAMIDE HYDROCHLORIDE
  22. VITAMIN C [Concomitant]
     Active Substance: ASCORBIC ACID
  23. MYRBETRIQ [Concomitant]
     Active Substance: MIRABEGRON
  24. metFORMIN HCl ER?(MOD) [Concomitant]
  25. HYDROXYZINE PAMOATE [Concomitant]
     Active Substance: HYDROXYZINE PAMOATE
  26. DEXAMETHASONE [Concomitant]
     Active Substance: DEXAMETHASONE
  27. CLOTRIMAZOLE [Concomitant]
     Active Substance: CLOTRIMAZOLE
  28. CALCIUM\VITAMIN D [Concomitant]
     Active Substance: CALCIUM\VITAMIN D
  29. PRAMIPEXOLE DIHYDROCHLORIDE [Concomitant]
     Active Substance: PRAMIPEXOLE DIHYDROCHLORIDE
  30. TAMOXIFEN CITRATE [Concomitant]
     Active Substance: TAMOXIFEN CITRATE
  31. POTASSIUM CITRATE [Concomitant]
     Active Substance: POTASSIUM CITRATE
  32. OMEPRAZOLE [Concomitant]
     Active Substance: DONEPEZIL HYDROCHLORIDE\OMEPRAZOLE\OMEPRAZOLE MAGNESIUM
  33. FLUVOXAMINE MALEATE [Concomitant]
     Active Substance: FLUVOXAMINE MALEATE
  34. FEXOFENADINE HYDROCHLORIDE [Concomitant]
     Active Substance: FEXOFENADINE HYDROCHLORIDE
  35. COLACE [Concomitant]
     Active Substance: DOCUSATE SODIUM

REACTIONS (3)
  - Lethargy [Unknown]
  - Dysphagia [Unknown]
  - Decreased appetite [Unknown]
